FAERS Safety Report 6031904-4 (Version None)
Quarter: 2008Q4

REPORT INFORMATION
  Report Type: 
  Country: None (occurrence: None)
  Receive Date: 20081229
  Receipt Date: 20071129
  Transmission Date: 20090506
  Serious: Yes (Hospitalization)
  Sender: FDA-Public Use
  Company Number: WAES 0712USA00351

PATIENT
  Age: 80 Year
  Sex: Female

DRUGS (8)
  1. ZETIA [Suspect]
     Dosage: 10 MG DAILY, PO
     Route: 048
  2. DIOVAN [Concomitant]
  3. ASPIRIN [Concomitant]
  4. LASIX [Concomitant]
  5. LIPITOR [Concomitant]
  6. PRILOSEC [Concomitant]
  7. TOPROLOL XL TABLETS [Concomitant]
  8. METOCARBAMOL [Concomitant]

REACTIONS (1)
  - RHABDOMYOLYSIS [None]
